FAERS Safety Report 9021542 (Version 1)
Quarter: 2013Q1

REPORT INFORMATION
  Report Type: Spontaneous
  Country: CA (occurrence: CA)
  Receive Date: 20130119
  Receipt Date: 20130119
  Transmission Date: 20140127
  Serious: Yes (Hospitalization)
  Sender: FDA-Public Use
  Company Number: CA-AMGEN-CANSP2013002355

PATIENT
  Age: 71 Year
  Sex: Female

DRUGS (13)
  1. ARANESP [Suspect]
     Indication: RENAL FAILURE CHRONIC
     Dosage: UNK
     Dates: start: 20120924
  2. ALPHA                              /00169801/ [Concomitant]
     Dosage: 0.25 MUG, 3TABLETS QD
  3. LYRICA [Concomitant]
     Dosage: 50 MG, QD
  4. LYRICA [Concomitant]
     Dosage: 75 MG, QD
  5. FUROSEMIDE [Concomitant]
     Dosage: 40 MG, 2 TABLETS QD
  6. ALLOPURINOL [Concomitant]
     Dosage: 100 MG, 1 TABLET QD
  7. LIPITOR [Concomitant]
     Dosage: 10 MG, QD
  8. DOCUSATE SODIUM [Concomitant]
     Dosage: 100 MG, 2 TABLETS BID
  9. REPLAVITE                          /00058902/ [Concomitant]
     Dosage: 1 TABLET, QD
  10. ASPIRIN [Concomitant]
     Dosage: 81 MG, QD
  11. CALCIUM CARBONATE [Concomitant]
     Dosage: 625 MG, 6 TABLETS QD
  12. APO-SALVENT                        /00139501/ [Concomitant]
  13. FLOVENT [Concomitant]
     Dosage: 125 MUG, 2 PUFFS QID

REACTIONS (3)
  - Impaired healing [Not Recovered/Not Resolved]
  - Blister [Unknown]
  - Oedema peripheral [Not Recovered/Not Resolved]
